FAERS Safety Report 20983476 (Version 2)
Quarter: 2022Q3

REPORT INFORMATION
  Report Type: Spontaneous
  Country: JP (occurrence: JP)
  Receive Date: 20220620
  Receipt Date: 20220720
  Transmission Date: 20221027
  Serious: Yes (Hospitalization)
  Sender: FDA-Public Use
  Company Number: JP-Eisai-202203164_HAL_P_1

PATIENT
  Age: 50 Year
  Sex: Female

DRUGS (3)
  1. ERIBULIN [Suspect]
     Active Substance: ERIBULIN
     Indication: Breast cancer
     Dosage: DOSE NOT PROVIDED
     Route: 041
     Dates: start: 20210416, end: 20211029
  2. TRASTUZUMAB [Concomitant]
     Active Substance: TRASTUZUMAB
     Indication: Breast cancer
     Dosage: DOSE AND FREQUENCY UNKNOWN
     Route: 065
  3. PERTUZUMAB [Concomitant]
     Active Substance: PERTUZUMAB
     Indication: Breast cancer
     Dosage: DOSE AND FREQUENCY UNKNOWN
     Route: 065

REACTIONS (1)
  - Vascular pseudoaneurysm ruptured [Recovering/Resolving]

NARRATIVE: CASE EVENT DATE: 20211107
